FAERS Safety Report 11806044 (Version 1)
Quarter: 2015Q4

REPORT INFORMATION
  Report Type: Report from Study
  Country: CA (occurrence: CA)
  Receive Date: 20151207
  Receipt Date: 20151207
  Transmission Date: 20160305
  Serious: Yes (Hospitalization)
  Sender: FDA-Public Use
  Company Number: PHHO2015CA020118

PATIENT
  Age: 56 Year
  Sex: Female
  Weight: 57.3 kg

DRUGS (6)
  1. DABRAFENIB [Suspect]
     Active Substance: DABRAFENIB
     Indication: METASTATIC MALIGNANT MELANOMA
     Dosage: 150 MG, BID
     Route: 048
     Dates: start: 20140717, end: 20151001
  2. RISEDRONIC ACID [Concomitant]
     Active Substance: RISEDRONIC ACID
     Indication: PROPHYLAXIS
     Dosage: UNK
     Route: 065
     Dates: start: 2012
  3. MEDI4736 [Suspect]
     Active Substance: DURVALUMAB
     Indication: METASTATIC MALIGNANT MELANOMA
     Dosage: 10 MG/KG, BIW (Q2WK)
     Route: 042
     Dates: start: 20140717, end: 20150703
  4. ASPIRIN. [Concomitant]
     Active Substance: ASPIRIN
     Indication: PROPHYLAXIS
     Dosage: UNK
     Route: 065
     Dates: start: 20150421
  5. TRAMETINIB [Suspect]
     Active Substance: TRAMETINIB
     Indication: METASTATIC MALIGNANT MELANOMA
     Dosage: 2 MG, QD
     Route: 048
     Dates: start: 20140717, end: 20151001
  6. ACETAMINOPHEN. [Concomitant]
     Active Substance: ACETAMINOPHEN
     Indication: PROPHYLAXIS
     Dosage: UNK
     Route: 048
     Dates: start: 20140907

REACTIONS (1)
  - Diarrhoea [Unknown]

NARRATIVE: CASE EVENT DATE: 20150919
